FAERS Safety Report 24142971 (Version 4)
Quarter: 2024Q3

REPORT INFORMATION
  Report Type: Report from Study
  Country: CA (occurrence: CA)
  Receive Date: 20240719
  Receipt Date: 20240822
  Transmission Date: 20241017
  Serious: Yes (Other)
  Sender: ABBVIE
  Company Number: CA-ABBVIE-5844034

PATIENT
  Age: 64 Year
  Sex: Female

DRUGS (3)
  1. RINVOQ [Suspect]
     Active Substance: UPADACITINIB
     Indication: Rheumatoid arthritis
     Dosage: THE LAST ADMIN DATE WAS 2024
     Route: 048
     Dates: start: 20240612
  2. RINVOQ [Suspect]
     Active Substance: UPADACITINIB
     Indication: Rheumatoid arthritis
     Dosage: DISCONTINUED IN JUL 2024
     Route: 048
     Dates: start: 20240707
  3. RINVOQ [Suspect]
     Active Substance: UPADACITINIB
     Indication: Rheumatoid arthritis
     Route: 048
     Dates: start: 20240709, end: 20240815

REACTIONS (4)
  - Pancreatitis [Recovering/Resolving]
  - Diarrhoea [Unknown]
  - Acne [Unknown]
  - Headache [Unknown]

NARRATIVE: CASE EVENT DATE: 20240101
